FAERS Safety Report 5427459-5 (Version None)
Quarter: 2007Q3

REPORT INFORMATION
  Report Type: 
  Country: None (occurrence: None)
  Receive Date: 20070824
  Receipt Date: 20070824
  Transmission Date: 20080115
  Serious: Yes (Other)
  Sender: FDA-Public Use
  Company Number: None

PATIENT
  Age: 40 Year
  Sex: Male
  Weight: 91.6266 kg

DRUGS (1)
  1. MYCOSTATIN [Suspect]
     Indication: CANDIDIASIS
     Dosage: 1 TSP TWICE DAILY PO
     Route: 048
     Dates: start: 20070717, end: 20070724

REACTIONS (1)
  - DRUG ERUPTION [None]
